FAERS Safety Report 5649725-0 (Version None)
Quarter: 2008Q1

REPORT INFORMATION
  Report Type: 
  Country: None (occurrence: None)
  Receive Date: 20080304
  Receipt Date: 20080303
  Transmission Date: 20080703
  Serious: Yes (Other)
  Sender: FDA-Public Use
  Company Number: ZM-BOEHRINGER INGELHEIM GMBH, GERMANY-2007-DE-06463GD

PATIENT
  Sex: Female

DRUGS (4)
  1. NEVIRAPINE [Suspect]
     Indication: HUMAN IMMUNODEFICIENCY VIRUS TRANSMISSION
     Route: 048
  2. NEVIRAPINE [Suspect]
     Indication: PROPHYLAXIS
  3. TRUVADA [Suspect]
     Indication: HUMAN IMMUNODEFICIENCY VIRUS TRANSMISSION
     Dosage: 300 MG TENOFOVIR/200 MG EMTRICITABINE
     Route: 048
  4. TRUVADA [Suspect]
     Indication: PROPHYLAXIS

REACTIONS (1)
  - ANAEMIA OF PREGNANCY [None]
